FAERS Safety Report 15546882 (Version 1)
Quarter: 2018Q4

REPORT INFORMATION
  Report Type: Spontaneous
  Country: US (occurrence: US)
  Receive Date: 20181024
  Receipt Date: 20181024
  Transmission Date: 20190205
  Serious: No
  Sender: FDA-Public Use
  Company Number: US-ALLERGAN-1810265US

PATIENT
  Sex: Female

DRUGS (1)
  1. PYLERA [Suspect]
     Active Substance: BISMUTH SUBCITRATE POTASSIUM\METRONIDAZOLE\TETRACYCLINE HYDROCHLORIDE
     Indication: HELICOBACTER INFECTION
     Dosage: UNK
     Route: 048
     Dates: start: 2017, end: 2017

REACTIONS (6)
  - Ageusia [Not Recovered/Not Resolved]
  - Dysgeusia [Recovered/Resolved]
  - Headache [Recovered/Resolved]
  - Abdominal pain upper [Recovered/Resolved]
  - Tongue discomfort [Not Recovered/Not Resolved]
  - Dyspepsia [Recovered/Resolved]

NARRATIVE: CASE EVENT DATE: 2017
